FAERS Safety Report 5347254-5 (Version None)
Quarter: 2007Q2

REPORT INFORMATION
  Report Type: 
  Country: None (occurrence: None)
  Receive Date: 20070606
  Receipt Date: 20070531
  Transmission Date: 20071010
  Serious: Yes (Other)
  Sender: FDA-Public Use
  Company Number: PHHO2006BE06867

PATIENT
  Age: 65 Year
  Sex: Female
  Weight: 73.8 kg

DRUGS (4)
  1. LETROZOLE [Suspect]
     Indication: BREAST CANCER
     Dosage: 2.5 MG, QD
     Route: 048
     Dates: start: 20041022
  2. ZOLEDRONIC ACID [Suspect]
     Dosage: 4MG EVERY 6 MONTHS
     Route: 042
     Dates: start: 20041022, end: 20051017
  3. ASPIRIN [Concomitant]
     Indication: PROPHYLAXIS
  4. CACIT VITAMINE D3 [Concomitant]
     Indication: PROPHYLAXIS

REACTIONS (3)
  - BONE DISORDER [None]
  - GINGIVAL RECESSION [None]
  - OSTEONECROSIS [None]
